FAERS Safety Report 4847271-5 (Version None)
Quarter: 2005Q4

REPORT INFORMATION
  Report Type: 
  Country: None (occurrence: None)
  Receive Date: 20051205
  Receipt Date: 20051205
  Transmission Date: 20060501
  Serious: Yes (Hospitalization, Other)
  Sender: FDA-Public Use
  Company Number: None

PATIENT
  Age: 45 Year
  Sex: Female
  Weight: 74.7 kg

DRUGS (2)
  1. DAPSONE [Suspect]
     Indication: METHAEMOGLOBINAEMIA
     Dates: start: 20050401, end: 20050414
  2. METHLENE BLUE [Suspect]
     Indication: HAEMOLYTIC ANAEMIA
     Dates: start: 20050414, end: 20050416

REACTIONS (5)
  - ASTHENIA [None]
  - DIZZINESS [None]
  - DYSPNOEA [None]
  - HAEMOLYTIC ANAEMIA [None]
  - RETICULOCYTE COUNT DECREASED [None]
